FAERS Safety Report 6007697-3 (Version None)
Quarter: 2008Q4

REPORT INFORMATION
  Report Type: 
  Country: None (occurrence: None)
  Receive Date: 20081217
  Receipt Date: 20080516
  Transmission Date: 20090506
  Serious: No
  Sender: FDA-Public Use
  Company Number: US-ASTRAZENECA-2008UW10131

PATIENT
  Sex: Male
  Weight: 93 kg

DRUGS (3)
  1. CRESTOR [Suspect]
     Indication: ARTERIOSCLEROSIS
     Route: 048
     Dates: start: 20060101
  2. DIOVAN [Concomitant]
  3. BLOOD PRESSURE MEDICATION [Concomitant]
     Indication: BLOOD PRESSURE ABNORMAL

REACTIONS (1)
  - BACK PAIN [None]
